FAERS Safety Report 13457285 (Version 3)
Quarter: 2017Q2

REPORT INFORMATION
  Report Type: Spontaneous
  Country: US (occurrence: US)
  Receive Date: 20170419
  Receipt Date: 20170426
  Transmission Date: 20170830
  Serious: Yes (Other)
  Sender: FDA-Public Use
  Company Number: US-PFIZER INC-2017164691

PATIENT
  Age: 40 Year
  Sex: Female
  Weight: 78 kg

DRUGS (2)
  1. METHOTREXATE SODIUM. [Suspect]
     Active Substance: METHOTREXATE SODIUM
     Indication: RHEUMATOID ARTHRITIS
     Dosage: UNK UNK, WEEKLY
  2. ENBREL [Suspect]
     Active Substance: ETANERCEPT
     Dosage: UNK UNK, WEEKLY

REACTIONS (9)
  - Abdominal pain upper [Unknown]
  - Gastrointestinal disorder [Unknown]
  - Quality of life decreased [Unknown]
  - Drug intolerance [Unknown]
  - Immune system disorder [Unknown]
  - Pruritus generalised [Unknown]
  - Tuberculosis [Unknown]
  - Malaise [Unknown]
  - Nausea [Unknown]
